FAERS Safety Report 21266281 (Version 1)
Quarter: 2022Q3

REPORT INFORMATION
  Report Type: Spontaneous
  Country: US (occurrence: None)
  Receive Date: 20220829
  Receipt Date: 20220829
  Transmission Date: 20221027
  Serious: Yes (Other)
  Sender: FDA-Public Use
  Company Number: None

PATIENT
  Age: 47 Year
  Sex: Female
  Weight: 69.75 kg

DRUGS (7)
  1. DEXTROAMPHET SACCHARAT, AMPHET ASPARTATE, DEXTROAMPHET SULFATE AND AMP [Suspect]
     Active Substance: AMPHETAMINE ASPARTATE\AMPHETAMINE SULFATE\DEXTROAMPHETAMINE SACCHARATE\DEXTROAMPHETAMINE SULFATE
     Indication: Attention deficit hyperactivity disorder
     Dosage: OTHER QUANTITY : 60 TABLET(S);?FREQUENCY : TWICE A DAY;?
     Route: 048
     Dates: start: 20220819, end: 20220828
  2. Adderall 20mg 2x day [Concomitant]
  3. clonapin .5 mg as needed [Concomitant]
  4. TYLENOL [Concomitant]
     Active Substance: ACETAMINOPHEN
  5. MOTRIN [Concomitant]
     Active Substance: IBUPROFEN
  6. multi vit daily [Concomitant]
  7. nasal spray for allergies [Concomitant]

REACTIONS (8)
  - Rash [None]
  - Product quality issue [None]
  - Manufacturing issue [None]
  - Oropharyngeal pain [None]
  - Condition aggravated [None]
  - Attention deficit hyperactivity disorder [None]
  - Drug ineffective [None]
  - Product physical issue [None]

NARRATIVE: CASE EVENT DATE: 20220819
